FAERS Safety Report 5246797-2 (Version None)
Quarter: 2007Q1

REPORT INFORMATION
  Report Type: 
  Country: None (occurrence: None)
  Receive Date: 20070226
  Receipt Date: 20070214
  Transmission Date: 20070707
  Serious: Yes (Other)
  Sender: FDA-Public Use
  Company Number: CA-PFIZER INC-2007005933

PATIENT
  Sex: Male
  Weight: 113.4 kg

DRUGS (9)
  1. LYRICA [Suspect]
     Indication: DIABETIC NEUROPATHY
     Route: 048
     Dates: start: 20061030, end: 20070112
  2. LYRICA [Suspect]
     Indication: PAIN
  3. DESIPRAMINE HCL [Suspect]
     Indication: PAIN
     Route: 048
     Dates: start: 20061030, end: 20070112
  4. DESIPRAMINE HCL [Suspect]
     Indication: INSOMNIA
  5. DILTIAZEM [Concomitant]
     Route: 048
  6. ALTACE [Concomitant]
     Route: 048
     Dates: start: 20020101
  7. PREVACID [Concomitant]
     Route: 048
  8. LIPIDIL [Concomitant]
     Dates: start: 20031101, end: 20070101
  9. CRESTOR [Concomitant]

REACTIONS (5)
  - DISTURBANCE IN ATTENTION [None]
  - DIZZINESS [None]
  - HEADACHE [None]
  - HYPERGLYCAEMIA [None]
  - WEIGHT INCREASED [None]
